FAERS Safety Report 8889630 (Version 1)
Quarter: 2012Q4

REPORT INFORMATION
  Report Type: 
  Country: DE (occurrence: DE)
  Receive Date: 20121107
  Receipt Date: 20121107
  Transmission Date: 20130627
  Serious: Yes (Life-Threatening)
  Sender: FDA-Public Use
  Company Number: GXKR2012DE003383

PATIENT

DRUGS (2)
  1. TRIAMHEXAL [Suspect]
     Indication: ANALGESIC THERAPY
     Dosage: 40 mg/day
     Route: 008
     Dates: start: 20120502, end: 20120502
  2. ROPIVACAINE [Concomitant]
     Indication: ANALGESIC THERAPY
     Dosage: 7.5 mg/day
     Route: 008

REACTIONS (4)
  - Hypokalaemia [Unknown]
  - Circulatory collapse [Unknown]
  - Lactic acidosis [Unknown]
  - Cyanosis [Unknown]
